FAERS Safety Report 8027330-9 (Version None)
Quarter: 2012Q1

REPORT INFORMATION
  Report Type: 
  Country: None (occurrence: None)
  Receive Date: 20120106
  Receipt Date: 20120102
  Transmission Date: 20120608
  Serious: Yes (Death, Hospitalization)
  Sender: FDA-Public Use
  Company Number: FR-BRISTOL-MYERS SQUIBB COMPANY-16325292

PATIENT
  Age: 92 Year
  Sex: Female

DRUGS (8)
  1. RISPERDAL [Suspect]
     Indication: HALLUCINATION
     Dosage: TABS
     Route: 048
     Dates: start: 20100101
  2. RISPERDAL [Suspect]
     Indication: DEMENTIA
     Dosage: TABS
     Route: 048
     Dates: start: 20100101
  3. PREVISCAN [Suspect]
     Indication: ATRIAL FIBRILLATION
     Dosage: 20MG TABS 1/4 TABS
     Route: 048
     Dates: end: 20110805
  4. LASIX [Suspect]
     Indication: HYPERTENSION
     Route: 048
  5. TANAKAN [Concomitant]
     Route: 048
  6. ACETAMINOPHEN [Concomitant]
     Route: 048
  7. IRBESARTAN [Suspect]
     Indication: HYPERTENSION
     Route: 048
  8. ATORVASTATIN CALCIUM [Concomitant]
     Indication: HYPERCHOLESTEROLAEMIA
     Route: 048

REACTIONS (3)
  - CRANIOCEREBRAL INJURY [None]
  - SUBARACHNOID HAEMORRHAGE [None]
  - FALL [None]
